FAERS Safety Report 7104862-9 (Version None)
Quarter: 2010Q4

REPORT INFORMATION
  Report Type: 
  Country: None (occurrence: None)
  Receive Date: 20101116
  Receipt Date: 20101110
  Transmission Date: 20110411
  Serious: Yes (Death, Hospitalization)
  Sender: FDA-Public Use
  Company Number: IE-BAYER-201046274GPV

PATIENT
  Age: 16 Year
  Sex: Female

DRUGS (2)
  1. YAZ [Suspect]
     Indication: ORAL CONTRACEPTION
     Dosage: TOTAL DAILY DOSE: 1 DF
     Route: 048
  2. FLUOXETINE [Concomitant]

REACTIONS (6)
  - CHEST PAIN [None]
  - CIRCULATORY COLLAPSE [None]
  - DYSPNOEA [None]
  - PULMONARY EMBOLISM [None]
  - RESPIRATORY ARREST [None]
  - TACHYCARDIA [None]
